FAERS Safety Report 5604339-3 (Version None)
Quarter: 2008Q1

REPORT INFORMATION
  Report Type: 
  Country: None (occurrence: None)
  Receive Date: 20080123
  Receipt Date: 20080123
  Transmission Date: 20080703
  Serious: Yes (Hospitalization, Other)
  Sender: FDA-Public Use
  Company Number: None

PATIENT
  Age: 35 Year
  Sex: Male
  Weight: 120 kg

DRUGS (3)
  1. IFOSFAMIDE [Suspect]
     Indication: HODGKIN'S DISEASE REFRACTORY
     Dosage: 4800MG DAILY IV DRIP 2 DOSES
     Route: 041
     Dates: start: 20080118, end: 20080119
  2. GEMCITABINE [Concomitant]
  3. VINORELBINE [Concomitant]

REACTIONS (4)
  - CONFUSIONAL STATE [None]
  - LETHARGY [None]
  - NEUROTOXICITY [None]
  - UNRESPONSIVE TO STIMULI [None]
